FAERS Safety Report 7619565-1 (Version None)
Quarter: 2011Q3

REPORT INFORMATION
  Report Type: 
  Country: None (occurrence: None)
  Receive Date: 20110719
  Receipt Date: 20101202
  Transmission Date: 20111222
  Serious: No
  Sender: FDA-Public Use
  Company Number: US-MYLANLABS-2010S1022231

PATIENT
  Age: 29 Year
  Sex: Female

DRUGS (1)
  1. THIOTHIXENE [Suspect]
     Indication: PSYCHOTIC DISORDER
     Route: 048
     Dates: start: 20100401, end: 20101101

REACTIONS (3)
  - CONFUSIONAL STATE [None]
  - FALL [None]
  - MEMORY IMPAIRMENT [None]
